FAERS Safety Report 11408846 (Version 4)
Quarter: 2015Q4

REPORT INFORMATION
  Report Type: Report from Study
  Country: CO (occurrence: CO)
  Receive Date: 20150823
  Receipt Date: 20151023
  Transmission Date: 20160304
  Serious: Yes (Death, Hospitalization, Other)
  Sender: FDA-Public Use
  Company Number: CO-BRISTOL-MYERS SQUIBB COMPANY-BMS-2015-024821

PATIENT
  Age: 56 Year
  Sex: Male
  Weight: 52 kg

DRUGS (1)
  1. CETUXIMAB [Suspect]
     Active Substance: CETUXIMAB
     Indication: HEAD AND NECK CANCER
     Dosage: 375 MG, QWK
     Route: 042
     Dates: start: 20130311

REACTIONS (8)
  - Speech disorder [Unknown]
  - Malignant neoplasm progression [Fatal]
  - Respiratory failure [Fatal]
  - Rash [Unknown]
  - Dysphagia [Unknown]
  - Haematemesis [Fatal]
  - Pneumonia [Unknown]
  - Oropharyngeal pain [Unknown]

NARRATIVE: CASE EVENT DATE: 20150404
